FAERS Safety Report 19457446 (Version 1)
Quarter: 2021Q2

REPORT INFORMATION
  Report Type: Spontaneous
  Country: US (occurrence: US)
  Receive Date: 20210624
  Receipt Date: 20210624
  Transmission Date: 20210717
  Serious: Yes (Other)
  Sender: FDA-Public Use
  Company Number: US-BAYER-2021-158892

PATIENT
  Sex: Male

DRUGS (2)
  1. XOFIGO [Suspect]
     Active Substance: RADIUM RA-223 DICHLORIDE
     Indication: NEOPLASM MALIGNANT
     Dosage: UNK
     Dates: start: 20190815, end: 20190815
  2. XOFIGO [Suspect]
     Active Substance: RADIUM RA-223 DICHLORIDE
     Indication: NEOPLASM MALIGNANT
     Dosage: UNK
     Dates: start: 20190718, end: 20190718

REACTIONS (1)
  - Oedema peripheral [None]

NARRATIVE: CASE EVENT DATE: 20190815
